FAERS Safety Report 20199849 (Version 2)
Quarter: 2022Q1

REPORT INFORMATION
  Report Type: Spontaneous
  Country: FR (occurrence: FR)
  Receive Date: 20211217
  Receipt Date: 20220105
  Transmission Date: 20220423
  Serious: Yes (Hospitalization)
  Sender: FDA-Public Use
  Company Number: FR-NOVARTISPH-NVSC2021FR284045

PATIENT
  Age: 90 Year
  Sex: Female

DRUGS (23)
  1. HYDROCHLOROTHIAZIDE [Suspect]
     Active Substance: HYDROCHLOROTHIAZIDE
     Indication: Hypertension
     Dosage: 1 DOSAGE FORM, QD
     Route: 048
     Dates: start: 2014, end: 20210917
  2. NICARDIPINE HYDROCHLORIDE [Suspect]
     Active Substance: NICARDIPINE HYDROCHLORIDE
     Indication: Hypertension
     Dosage: 2 DOSAGE FORM, QD
     Route: 048
     Dates: start: 2014, end: 20210917
  3. VOLTAREN [Suspect]
     Active Substance: DICLOFENAC SODIUM
     Indication: Pain
     Dosage: UNK
     Route: 003
     Dates: end: 20210917
  4. TRAMADOL [Suspect]
     Active Substance: TRAMADOL
     Indication: Pain
     Dosage: 1 DOSAGE FORM, QD
     Route: 048
     Dates: end: 20210917
  5. RILMENIDINE [Suspect]
     Active Substance: RILMENIDINE
     Indication: Hypertension
     Dosage: 2 DOSAGE FORM, QD
     Route: 048
     Dates: start: 2014, end: 20210917
  6. FUROSEMIDE [Suspect]
     Active Substance: FUROSEMIDE
     Indication: Oedema
     Dosage: 1 DOSAGE FORM, QD
     Route: 048
     Dates: end: 20210917
  7. BISOPROLOL FUMARATE [Suspect]
     Active Substance: BISOPROLOL FUMARATE
     Indication: Product used for unknown indication
     Dosage: 1 DOSAGE FORM, QD
     Route: 048
     Dates: end: 20210917
  8. CANDESARTAN CILEXETIL [Suspect]
     Active Substance: CANDESARTAN CILEXETIL
     Indication: Hypertension
     Dosage: 1 DOSAGE FORM, QD
     Route: 048
     Dates: start: 2014, end: 20210917
  9. HERBALS [Suspect]
     Active Substance: HERBALS
     Indication: Product used for unknown indication
     Dosage: 1 DOSAGE FORM, QD
     Route: 048
     Dates: start: 2019, end: 20210917
  10. LANSOPRAZOLE [Suspect]
     Active Substance: LANSOPRAZOLE
     Indication: Ulcer
     Dosage: 1 DOSAGE FORM, QD
     Route: 048
     Dates: start: 2006, end: 20210917
  11. CALCIUM\CHOLECALCIFEROL [Suspect]
     Active Substance: CALCIUM\CHOLECALCIFEROL
     Indication: Osteoporosis
     Dosage: 2 DOSAGE FORM, QD (SACHET)
     Route: 048
     Dates: start: 2006, end: 20210917
  12. ELIQUIS [Suspect]
     Active Substance: APIXABAN
     Indication: Thrombosis prophylaxis
     Dosage: 2 DOSAGE FORM, QD
     Route: 048
     Dates: end: 20210917
  13. DYMISTA [Suspect]
     Active Substance: AZELASTINE HYDROCHLORIDE\FLUTICASONE PROPIONATE
     Indication: Rhinitis allergic
     Dosage: 2 DOSAGE FORM, QD
     Route: 045
     Dates: end: 20210917
  14. LORMETAZEPAM [Suspect]
     Active Substance: LORMETAZEPAM
     Indication: Prophylaxis
     Dosage: 1 DOSAGE FORM, QD
     Route: 048
     Dates: end: 20210917
  15. LORMETAZEPAM [Suspect]
     Active Substance: LORMETAZEPAM
     Indication: Insomnia
  16. CLONIDINE HYDROCHLORIDE [Suspect]
     Active Substance: CLONIDINE HYDROCHLORIDE
     Indication: Hypertension
     Dosage: 1 DOSAGE FORM, QD (0.15MG 0-0-1)
     Route: 048
     Dates: start: 2016, end: 20210917
  17. ASCORBIC ACID\FERROUS CHLORIDE [Suspect]
     Active Substance: ASCORBIC ACID\FERROUS CHLORIDE
     Indication: Iron deficiency anaemia
     Dosage: 1 DOSAGE FORM, QD
     Route: 048
     Dates: end: 20210917
  18. FOLIC ACID [Suspect]
     Active Substance: FOLIC ACID
     Indication: Hypovitaminosis
     Dosage: 1 DOSAGE FORM, QD
     Route: 048
     Dates: start: 2019, end: 20210917
  19. RISEDRONIC ACID [Concomitant]
     Active Substance: RISEDRONIC ACID
     Indication: Product used for unknown indication
     Dosage: UNK
     Route: 065
  20. PREDNISONE [Concomitant]
     Active Substance: PREDNISONE
     Indication: Product used for unknown indication
     Dosage: UNK
     Route: 065
  21. POTASSIUM CHLORIDE [Concomitant]
     Active Substance: POTASSIUM CHLORIDE
     Indication: Product used for unknown indication
     Dosage: UNK
     Route: 065
  22. MOVICOL [Concomitant]
     Active Substance: POLYETHYLENE GLYCOL 3350\POTASSIUM CHLORIDE\SODIUM BICARBONATE\SODIUM CHLORIDE
     Indication: Product used for unknown indication
     Dosage: UNK
     Route: 065
  23. ASPIRIN DL-LYSINE [Concomitant]
     Active Substance: ASPIRIN DL-LYSINE
     Indication: Product used for unknown indication
     Dosage: UNK
     Route: 065

REACTIONS (2)
  - Acute kidney injury [Recovered/Resolved]
  - Hypotension [Recovered/Resolved]

NARRATIVE: CASE EVENT DATE: 20210917
